FAERS Safety Report 20618400 (Version 3)
Quarter: 2022Q2

REPORT INFORMATION
  Report Type: Spontaneous
  Country: JP (occurrence: JP)
  Receive Date: 20220321
  Receipt Date: 20220601
  Transmission Date: 20220721
  Serious: Yes (Hospitalization)
  Sender: FDA-Public Use
  Company Number: JP-NOVARTISPH-NVSJ2022JP004786

PATIENT
  Age: 80 Year
  Sex: Male
  Weight: 78.5 kg

DRUGS (12)
  1. ENTRESTO [Suspect]
     Active Substance: SACUBITRIL\VALSARTAN
     Indication: Hypertension
     Dosage: 200 MG, QD
     Route: 048
     Dates: start: 20220224, end: 20220307
  2. ENTRESTO [Suspect]
     Active Substance: SACUBITRIL\VALSARTAN
     Indication: Cardiac failure chronic
  3. ESAXERENONE [Concomitant]
     Active Substance: ESAXERENONE
     Indication: Blood pressure management
     Dosage: 2.5 MG
     Route: 048
  4. NAFTOPIDIL [Concomitant]
     Active Substance: NAFTOPIDIL
     Indication: Product used for unknown indication
     Dosage: UNK
     Route: 065
  5. TRELAGLIPTIN SUCCINATE [Concomitant]
     Active Substance: TRELAGLIPTIN SUCCINATE
     Indication: Diabetes mellitus management
     Dosage: 100 MG, 1/7 AMOUNT
     Route: 048
  6. METFORMIN HYDROCHLORIDE [Concomitant]
     Active Substance: METFORMIN HYDROCHLORIDE
     Indication: Diabetes mellitus management
     Dosage: 750 MG
     Route: 048
  7. PRAVASTATIN SODIUM [Concomitant]
     Active Substance: PRAVASTATIN SODIUM
     Indication: Dyslipidaemia
     Dosage: 10 MG
     Route: 048
  8. AMARYL [Concomitant]
     Active Substance: GLIMEPIRIDE
     Indication: Diabetes mellitus management
     Dosage: 1 MG
     Route: 048
  9. OMEGA-3-ACID ETHYL ESTERS [Concomitant]
     Active Substance: OMEGA-3-ACID ETHYL ESTERS
     Indication: Nutritional supplementation
     Dosage: 2 G/DOSE
     Route: 048
  10. CONSTAN [Concomitant]
     Indication: Anxiety
     Dosage: 0.4 MG
     Route: 048
  11. MOVICOL [Concomitant]
     Active Substance: POLYETHYLENE GLYCOL 3350\POTASSIUM CHLORIDE\SODIUM BICARBONATE\SODIUM CHLORIDE
     Indication: Constipation
     Dosage: 13.7046 G/DAY
     Route: 048
  12. KAYEXALATE [Concomitant]
     Active Substance: SODIUM POLYSTYRENE SULFONATE
     Indication: Blood potassium decreased
     Dosage: 10 G/DOSE
     Route: 048
     Dates: start: 20220224, end: 20220303

REACTIONS (11)
  - Cardiac failure congestive [Recovered/Resolved with Sequelae]
  - Pleural effusion [Unknown]
  - Sinus bradycardia [Unknown]
  - Loss of consciousness [Unknown]
  - Decreased activity [Unknown]
  - Atrioventricular block [Unknown]
  - Renal impairment [Recovering/Resolving]
  - Oedema [Recovering/Resolving]
  - Face oedema [Recovering/Resolving]
  - Anaemia [Unknown]
  - Disease progression [Unknown]

NARRATIVE: CASE EVENT DATE: 20220303
